FAERS Safety Report 5615411-6 (Version None)
Quarter: 2008Q1

REPORT INFORMATION
  Report Type: 
  Country: None (occurrence: None)
  Receive Date: 20080206
  Receipt Date: 20080122
  Transmission Date: 20080703
  Serious: Yes (Hospitalization)
  Sender: FDA-Public Use
  Company Number: JP-ELI_LILLY_AND_COMPANY-JP200707003135

PATIENT
  Sex: Female
  Weight: 43 kg

DRUGS (13)
  1. PEMETREXED [Suspect]
     Indication: PLEURAL MESOTHELIOMA MALIGNANT
     Dosage: 500 MG, OTHER
     Route: 042
     Dates: start: 20070406, end: 20070406
  2. CISPLATIN [Suspect]
     Indication: PLEURAL MESOTHELIOMA MALIGNANT
     Dosage: 50 MG, OTHER
     Route: 042
     Dates: start: 20070406, end: 20070406
  3. PANVITAN [Concomitant]
     Dosage: 1 G, DAILY (1/D)
     Route: 048
     Dates: start: 20070330, end: 20070427
  4. HYDROXOCOBALAMIN ACETATE [Concomitant]
     Dosage: 1 MG, OTHER
     Route: 030
     Dates: start: 20070330, end: 20070330
  5. DUROTEP [Concomitant]
     Indication: CANCER PAIN
     Dosage: 2.5 MG, DAILY (1/D)
     Route: 062
     Dates: start: 20070423
  6. MAGNESIUM OXIDE [Concomitant]
     Indication: PROPHYLAXIS
     Dosage: 1 G, DAILY (1/D)
     Route: 048
  7. BROCIN [Concomitant]
     Indication: PROPHYLAXIS
     Dosage: 12 ML, DAILY (1/D)
     Route: 048
  8. CODEINE PHOSPHATE [Concomitant]
     Indication: PROPHYLAXIS
     Dosage: 1.2 G, DAILY (1/D)
     Route: 048
  9. ALFAROL [Concomitant]
     Indication: OSTEOPOROSIS
     Dosage: 0.25 UG, DAILY (1/D)
     Route: 048
  10. OMEPRAL [Concomitant]
     Indication: PROPHYLAXIS
     Dosage: 10 MG, DAILY (1/D)
     Route: 048
  11. RYTHMODAN [Concomitant]
     Indication: ATRIAL FIBRILLATION
     Dosage: 150 MG, DAILY (1/D)
     Route: 048
  12. SIGMART [Concomitant]
     Indication: ANGINA PECTORIS
     Dosage: 15 MG, DAILY (1/D)
     Route: 048
  13. URSO 250 [Concomitant]
     Indication: LIVER DISORDER
     Dosage: 300 MG, DAILY (1/D)
     Route: 048

REACTIONS (1)
  - ANEURYSM [None]
